FAERS Safety Report 8373895-7 (Version None)
Quarter: 2012Q2

REPORT INFORMATION
  Report Type: 
  Country: None (occurrence: None)
  Receive Date: 20120521
  Receipt Date: 20120516
  Transmission Date: 20120825
  Serious: Yes (Hospitalization)
  Sender: FDA-Public Use
  Company Number: DE-ROCHE-749657

PATIENT
  Sex: Female
  Weight: 67 kg

DRUGS (6)
  1. GRANISETRON [Concomitant]
  2. METOCLOPRAMIDE [Concomitant]
  3. AVASTIN [Suspect]
     Indication: BREAST CANCER
     Dosage: DATE OF LAST DOSE PRIOR TO SAE: 29 JUN 2010, DOSE FORM: INFUSION DAY 1 EVERY 3 WEEKS
     Route: 042
  4. LORAZEPAM [Concomitant]
     Dosage: DOSE: 1/2 DOSEFORM/DAY
  5. XELODA [Suspect]
     Indication: BREAST CANCER
     Dosage: DATE OF LAST DOSE PRIOR TO SAE: 13 JULY 2010, PERMANENTLY DISCONTINUED ADMINISTERED DAYS 1-14
     Route: 048
  6. PANTOPRAZOLE [Concomitant]

REACTIONS (2)
  - PATHOLOGICAL FRACTURE [None]
  - CAUDA EQUINA SYNDROME [None]
